FAERS Safety Report 7684704 (Version 4)
Quarter: 2013Q3

REPORT INFORMATION
  Report Type: Spontaneous
  Country: US (occurrence: US)
  Receive Date: 20101129
  Receipt Date: 20130809
  Transmission Date: 20140515
  Serious: Yes (Other)
  Sender: FDA-Public Use
  Company Number: US-ROCHE-722638

PATIENT
  Age: 31 Year
  Sex: Male
  Weight: 63.5 kg

DRUGS (2)
  1. ACCUTANE [Suspect]
     Indication: ACNE CYSTIC
     Route: 065
     Dates: start: 1978, end: 1979
  2. ACCUTANE [Suspect]
     Dosage: TAKEN FOR THREE MONTHS
     Route: 065

REACTIONS (5)
  - Crohn^s disease [Unknown]
  - Gastrointestinal injury [Unknown]
  - Intestinal obstruction [Unknown]
  - Chapped lips [Unknown]
  - Dry skin [Unknown]
